FAERS Safety Report 6704416-X (Version None)
Quarter: 2010Q2

REPORT INFORMATION
  Report Type: 
  Country: None (occurrence: None)
  Receive Date: 20100430
  Receipt Date: 20100422
  Transmission Date: 20101027
  Serious: Yes (Life-Threatening, Hospitalization)
  Sender: FDA-Public Use
  Company Number: FR-ABBOTT-10P-056-0633482-00

PATIENT
  Age: 21 Year
  Sex: Female

DRUGS (3)
  1. DEPAKENE [Suspect]
     Indication: EPILEPSY
     Dates: start: 20070101, end: 20100213
  2. DEPAKENE [Suspect]
     Route: 048
     Dates: start: 20100301
  3. LAMICTAL [Suspect]
     Indication: EPILEPSY
     Dates: start: 20100119, end: 20100212

REACTIONS (1)
  - TOXIC EPIDERMAL NECROLYSIS [None]
